FAERS Safety Report 8489160-3 (Version None)
Quarter: 2012Q3

REPORT INFORMATION
  Report Type: 
  Country: None (occurrence: None)
  Receive Date: 20120705
  Receipt Date: 20120625
  Transmission Date: 20120928
  Serious: Yes (Hospitalization)
  Sender: FDA-Public Use
  Company Number: FR-ASTRAZENECA-2002CG00462

PATIENT
  Age: 3 Year
  Sex: Female
  Weight: 16 kg

DRUGS (1)
  1. EMLA [Suspect]
     Indication: LOCAL ANAESTHESIA
     Route: 061
     Dates: start: 20020222, end: 20020222

REACTIONS (4)
  - OVERDOSE [None]
  - METHAEMOGLOBINAEMIA [None]
  - GRAND MAL CONVULSION [None]
  - SOMNOLENCE [None]
